FAERS Safety Report 7525765-1 (Version None)
Quarter: 2011Q2

REPORT INFORMATION
  Report Type: 
  Country: None (occurrence: None)
  Receive Date: 20110606
  Receipt Date: 20110603
  Transmission Date: 20111010
  Serious: Yes (Death)
  Sender: FDA-Public Use
  Company Number: PHHY2011VE48314

PATIENT
  Sex: Female

DRUGS (1)
  1. DIOVAN HCT [Suspect]
     Indication: HYPERTENSION
     Dosage: 1 DF, BID (80 MG VALSARTAN/ 12.5 MG HYDROCHLOROTIAZIDE)

REACTIONS (1)
  - NEOPLASM MALIGNANT [None]
